FAERS Safety Report 24841567 (Version 1)
Quarter: 2025Q1

REPORT INFORMATION
  Report Type: Spontaneous
  Country: US (occurrence: None)
  Receive Date: 20250114
  Receipt Date: 20250114
  Transmission Date: 20250409
  Serious: Yes (Death)
  Sender: FDA-CTU
  Company Number: None

PATIENT
  Age: 74 Year
  Sex: Female

DRUGS (6)
  1. CELEXA [Suspect]
     Active Substance: CITALOPRAM HYDROBROMIDE
  2. HUMULIN 70/30 KWIKPEN [Suspect]
     Active Substance: INSULIN HUMAN
  3. LANTUS [Suspect]
     Active Substance: INSULIN GLARGINE
  4. PANTOPRAZOLE SODIUM [Suspect]
     Active Substance: PANTOPRAZOLE SODIUM
  5. OCTREOTIDE [Suspect]
     Active Substance: OCTREOTIDE
  6. MULTIVITAMIN WITH FLUORIDE NOS [Suspect]
     Active Substance: SODIUM FLUORIDE\VITAMINS

REACTIONS (1)
  - Cardiac failure [None]

NARRATIVE: CASE EVENT DATE: 20250109
